FAERS Safety Report 14223836 (Version 1)
Quarter: 2017Q4

REPORT INFORMATION
  Report Type: Report from Study
  Country: AU (occurrence: AU)
  Receive Date: 20171125
  Receipt Date: 20171125
  Transmission Date: 20180321
  Serious: Yes (Other)
  Sender: FDA-Public Use
  Company Number: PHHY2017AU171608

PATIENT

DRUGS (1)
  1. COSENTYX [Suspect]
     Active Substance: SECUKINUMAB
     Indication: PSORIATIC ARTHROPATHY
     Route: 065

REACTIONS (23)
  - Gait disturbance [Unknown]
  - Arthralgia [Unknown]
  - Asthenia [Unknown]
  - Feeling hot [Unknown]
  - Musculoskeletal stiffness [Unknown]
  - Intervertebral disc protrusion [Unknown]
  - Sciatica [Unknown]
  - Back pain [Unknown]
  - Pain in extremity [Unknown]
  - Neck pain [Unknown]
  - Malaise [Unknown]
  - Cervical radiculopathy [Unknown]
  - Head discomfort [Unknown]
  - Lethargy [Unknown]
  - Hyperhidrosis [Unknown]
  - Arthropathy [Unknown]
  - Poor quality sleep [Unknown]
  - Eye irritation [Unknown]
  - Spinal pain [Unknown]
  - Cervical spinal stenosis [Unknown]
  - Fatigue [Unknown]
  - Photophobia [Unknown]
  - Pain [Unknown]
